FAERS Safety Report 20301680 (Version 10)
Quarter: 2023Q1

REPORT INFORMATION
  Report Type: Report from Study
  Country: US (occurrence: US)
  Receive Date: 20220105
  Receipt Date: 20230224
  Transmission Date: 20230417
  Serious: Yes (Hospitalization, Other)
  Sender: FDA-Public Use
  Company Number: US-BoehringerIngelheim-2021-BI-145719

PATIENT
  Age: 63 Year
  Sex: Female
  Weight: 56.60 kg

DRUGS (3)
  1. NINTEDANIB [Suspect]
     Active Substance: NINTEDANIB
     Indication: Non-small cell lung cancer
     Route: 048
  2. NIVOLUMAB [Suspect]
     Active Substance: NIVOLUMAB
     Indication: Product used for unknown indication
  3. IPILIMUMAB [Suspect]
     Active Substance: IPILIMUMAB
     Indication: Product used for unknown indication

REACTIONS (8)
  - Urticaria [Unknown]
  - Pseudolymphoma [Recovered/Resolved]
  - Lichenoid keratosis [Recovered/Resolved]
  - Colitis [Unknown]
  - Pneumonitis [Unknown]
  - Acute respiratory failure [Recovered/Resolved]
  - Dermatitis acneiform [Unknown]
  - Sepsis [Recovered/Resolved]

NARRATIVE: CASE EVENT DATE: 20191218
